FAERS Safety Report 9637776 (Version 1)
Quarter: 2013Q4

REPORT INFORMATION
  Report Type: Spontaneous
  Country: GB (occurrence: None)
  Receive Date: 20131018
  Receipt Date: 20131018
  Transmission Date: 20140711
  Serious: Yes (Other)
  Sender: FDA-Public Use
  Company Number: AUR-APL-2013-08539

PATIENT
  Age: 58 Year
  Sex: Female

DRUGS (9)
  1. BISOPROLOL [Suspect]
     Indication: PRODUCT USED FOR UNKNOWN INDICATION
     Route: 048
     Dates: start: 2011
  2. FLECAINIDE(FLECAINIDE) [Concomitant]
  3. FLUTICASONE(FLUCTICASONE) [Concomitant]
  4. HYDROXYCHLOROQUIN(HYDROCHLOROQUINE) [Concomitant]
  5. OXIS(FORMOTEROL FUMARTE) [Concomitant]
  6. PREDNISOLONE(PREDNISOLONE) [Concomitant]
  7. RAMIPRIL(RAMIPRIL) [Concomitant]
  8. ROSUVASTATIN(ROSUVASTATIN) [Concomitant]
  9. SALBUTAMOL SUFLATE(SALBUTAMOL SULFATE) [Concomitant]

REACTIONS (4)
  - Heart rate decreased [None]
  - Diarrhoea [None]
  - Syncope [None]
  - Fluid retention [None]
